FAERS Safety Report 5734423-5 (Version None)
Quarter: 2008Q2

REPORT INFORMATION
  Report Type: 
  Country: None (occurrence: None)
  Receive Date: 20080512
  Receipt Date: 20080122
  Transmission Date: 20081010
  Serious: No
  Sender: FDA-Public Use
  Company Number: A0704633A

PATIENT
  Age: 65 Year
  Sex: Female

DRUGS (3)
  1. NABUMETONE [Suspect]
     Dosage: 1500MG PER DAY
     Route: 048
     Dates: start: 20080117, end: 20080119
  2. SYNTHROID [Concomitant]
  3. CORTEF [Concomitant]

REACTIONS (6)
  - ABDOMINAL DISCOMFORT [None]
  - CONSTIPATION [None]
  - DRUG INEFFECTIVE [None]
  - DRY MOUTH [None]
  - DRY THROAT [None]
  - HEADACHE [None]
